FAERS Safety Report 8699727 (Version 2)
Quarter: 2012Q4

REPORT INFORMATION
  Report Type: Report from Study
  Country: JP (occurrence: JP)
  Receive Date: 20120802
  Receipt Date: 20121009
  Transmission Date: 20130627
  Serious: Yes (Hospitalization)
  Sender: FDA-Public Use
  Company Number: JP-GLAXOSMITHKLINE-B0819551A

PATIENT
  Age: 80 Year
  Sex: Female
  Weight: 56 kg

DRUGS (9)
  1. TYKERB [Suspect]
     Indication: BREAST CANCER
     Route: 048
     Dates: start: 20120119, end: 20120603
  2. XELODA [Suspect]
     Route: 048
     Dates: start: 20120119, end: 20120603
  3. MEDROXYPROGESTERON [Concomitant]
     Indication: BREAST CANCER
     Route: 048
     Dates: start: 20120319
  4. SITAGLIPTIN PHOSPHATE [Concomitant]
     Indication: DIABETES MELLITUS
     Route: 048
  5. BASEN [Concomitant]
     Indication: DIABETES MELLITUS
     Route: 048
  6. NORVASC [Concomitant]
     Indication: HYPERTENSION
     Route: 048
  7. RENIVACE [Concomitant]
     Indication: HYPERTENSION
     Route: 048
  8. BIOFERMIN [Concomitant]
     Indication: PROPHYLAXIS AGAINST DIARRHOEA
     Route: 048
     Dates: start: 20120119
  9. HIRUDOID [Concomitant]
     Indication: PROPHYLAXIS
     Route: 061
     Dates: start: 20120119

REACTIONS (1)
  - Acute prerenal failure [Unknown]
